FAERS Safety Report 7475711-4 (Version None)
Quarter: 2011Q2

REPORT INFORMATION
  Report Type: 
  Country: None (occurrence: None)
  Receive Date: 20110512
  Receipt Date: 20110505
  Transmission Date: 20111010
  Serious: Yes (Other)
  Sender: FDA-Public Use
  Company Number: US-SANOFI-AVENTIS-2011SA028691

PATIENT
  Sex: Male

DRUGS (2)
  1. PRILOSEC [Suspect]
     Route: 065
  2. PLAVIX [Suspect]
     Route: 065

REACTIONS (2)
  - GASTRIC ULCER [None]
  - CORONARY ARTERY OCCLUSION [None]
